FAERS Safety Report 24748032 (Version 1)
Quarter: 2024Q4

REPORT INFORMATION
  Report Type: Spontaneous
  Country: JP (occurrence: JP)
  Receive Date: 20241218
  Receipt Date: 20241218
  Transmission Date: 20250115
  Serious: Yes (Hospitalization)
  Sender: CELLTRION
  Company Number: JP-CELLTRION INC.-2024JP031868

PATIENT

DRUGS (3)
  1. TRASTUZUMAB [Suspect]
     Active Substance: TRASTUZUMAB
     Indication: HER2 positive gastric cancer
     Dosage: UNK
     Route: 041
     Dates: start: 20240716
  2. SOLU-MEDROL [Concomitant]
     Active Substance: METHYLPREDNISOLONE SODIUM SUCCINATE
     Indication: Allergy prophylaxis
     Dosage: 500 MG
     Route: 042
  3. CALONAL [Concomitant]
     Active Substance: ACETAMINOPHEN
     Indication: Premedication
     Dosage: PROVIDED FOR FOUR COURSES

REACTIONS (4)
  - Pallor [Recovered/Resolved]
  - Oxygen saturation decreased [Recovered/Resolved]
  - Chills [Recovered/Resolved]
  - Chills [Recovered/Resolved]

NARRATIVE: CASE EVENT DATE: 20240716
